FAERS Safety Report 7457349-8 (Version None)
Quarter: 2011Q1

REPORT INFORMATION
  Report Type: 
  Country: None (occurrence: None)
  Receive Date: 20110302
  Receipt Date: 20110119
  Transmission Date: 20110831
  Serious: No
  Sender: FDA-Public Use
  Company Number: 021527

PATIENT
  Sex: Female
  Weight: 52.1 kg

DRUGS (8)
  1. VITAMIN B NOS [Concomitant]
  2. TRAZODONE HCL [Concomitant]
  3. ACARBOSE [Concomitant]
  4. ACETAMINOPHEN [Concomitant]
  5. CIMZIA [Suspect]
     Indication: CROHN'S DISEASE
     Dosage: (400 MG 1X/MONTH SUBCUTANEOUS)
     Route: 058
     Dates: start: 20101007
  6. FOSAMAX [Concomitant]
  7. VITAMIN D [Concomitant]
  8. FEXOFENADINE [Concomitant]

REACTIONS (18)
  - GASTROINTESTINAL OBSTRUCTION [None]
  - OEDEMA PERIPHERAL [None]
  - ASTHENIA [None]
  - GAIT DISTURBANCE [None]
  - BLOOD IRON DECREASED [None]
  - BALANCE DISORDER [None]
  - ABDOMINAL PAIN UPPER [None]
  - DECREASED APPETITE [None]
  - CONSTIPATION [None]
  - FATIGUE [None]
  - INTESTINAL OBSTRUCTION [None]
  - INJECTION SITE ERYTHEMA [None]
  - WEIGHT INCREASED [None]
  - FEAR OF NEEDLES [None]
  - DYSARTHRIA [None]
  - DYSPNOEA [None]
  - DYSPHAGIA [None]
  - INJECTION SITE SWELLING [None]
